FAERS Safety Report 10630767 (Version 1)
Quarter: 2014Q4

REPORT INFORMATION
  Report Type: Spontaneous
  Country: US (occurrence: US)
  Receive Date: 20141205
  Receipt Date: 20141205
  Transmission Date: 20150529
  Serious: No
  Sender: FDA-Public Use
  Company Number: US-BRISTOL-MYERS SQUIBB COMPANY-21635636

PATIENT
  Age: 59 Year
  Sex: Male
  Weight: 69.7 kg

DRUGS (1)
  1. IPILIMUMAB [Suspect]
     Active Substance: IPILIMUMAB

REACTIONS (3)
  - Hypophysitis [Unknown]
  - Hypothyroidism [Unknown]
  - Adrenal insufficiency [Unknown]
